FAERS Safety Report 5853273-2 (Version None)
Quarter: 2008Q3

REPORT INFORMATION
  Report Type: 
  Country: None (occurrence: None)
  Receive Date: 20080821
  Receipt Date: 20080812
  Transmission Date: 20090109
  Serious: Yes (Hospitalization, Other)
  Sender: FDA-Public Use
  Company Number: US-AMGEN-US300896

PATIENT
  Sex: Female

DRUGS (15)
  1. SENSIPAR [Suspect]
     Indication: DRUG USE FOR UNKNOWN INDICATION
  2. EPOGEN [Concomitant]
     Indication: ANAEMIA
  3. DEXTROSE 5% AND SODIUM CHLORIDE 0.45% IN PLASTIC CONTAINER [Concomitant]
     Route: 042
  4. ACTIVASE [Concomitant]
  5. PHOSLO [Concomitant]
  6. COREG [Concomitant]
  7. PLAVIX [Concomitant]
  8. DOCUSATE [Concomitant]
  9. ZETIA [Concomitant]
  10. ATARAX [Concomitant]
  11. INSULIN [Concomitant]
  12. LEVOTHYROXINE SODIUM [Concomitant]
  13. NEPHRO-VITE [Concomitant]
  14. ZOCOR [Concomitant]
  15. DIOVAN [Concomitant]

REACTIONS (2)
  - DYSPHAGIA [None]
  - RENAL FAILURE CHRONIC [None]
